FAERS Safety Report 20353628 (Version 2)
Quarter: 2022Q1

REPORT INFORMATION
  Report Type: Spontaneous
  Country: JP (occurrence: JP)
  Receive Date: 20220120
  Receipt Date: 20220223
  Transmission Date: 20220423
  Serious: Yes (Hospitalization, Other)
  Sender: FDA-Public Use
  Company Number: JP-AMGEN-JPNSP2021202809

PATIENT
  Age: 87 Year
  Sex: Female
  Weight: 34 kg

DRUGS (11)
  1. EVENITY [Suspect]
     Active Substance: ROMOSOZUMAB-AQQG
     Indication: Osteoporosis
     Dosage: 210 MILLIGRAM, QMO
     Route: 058
     Dates: start: 20211213, end: 20211213
  2. LAFUTIDINE [Concomitant]
     Active Substance: LAFUTIDINE
     Dosage: 10 MILLIGRAM, QD AFTER BREAKFAST
  3. BISOPROLOL FUMARATE [Concomitant]
     Active Substance: BISOPROLOL FUMARATE
     Dosage: 2.5 MILLIGRAM, QD AFTER BREAKFAST
  4. ROSUVASTATIN [Concomitant]
     Active Substance: ROSUVASTATIN
     Dosage: 2.5 MILLIGRAM, QD AFTER BREAKFAST
  5. MIROGABALIN BESYLATE [Concomitant]
     Active Substance: MIROGABALIN BESYLATE
     Dosage: UNK
  6. KETOPROFEN [Concomitant]
     Active Substance: KETOPROFEN
     Dosage: 40 MILLIGRAM
  7. ALFACALCIDOL [Concomitant]
     Active Substance: ALFACALCIDOL
     Indication: Vitamin D
     Dosage: 1 MICROGRAM, QD
     Route: 048
     Dates: start: 20211213
  8. EDOXABAN TOSYLATE [Concomitant]
     Active Substance: EDOXABAN TOSYLATE
     Dosage: 30 MILLIGRAM, QD AFTER BREAKFAST
  9. CALONAL [Concomitant]
     Active Substance: ACETAMINOPHEN
     Indication: Pyrexia
     Dosage: 200 MILLIGRAM AT A DOSE OF 2 TABLETS
  10. CALONAL [Concomitant]
     Active Substance: ACETAMINOPHEN
     Indication: Pain
  11. MAGNESIUM OXIDE [Concomitant]
     Active Substance: MAGNESIUM OXIDE
     Dosage: 330 MILLIGRAM, TID AT A DOSE OF 3 TABLETS AFTER EVERY MEAL

REACTIONS (6)
  - Pulmonary embolism [Unknown]
  - Pleural effusion [Unknown]
  - Pneumonia [Unknown]
  - Muscular weakness [Unknown]
  - Arthralgia [Unknown]
  - Tremor [Unknown]

NARRATIVE: CASE EVENT DATE: 20211218
